FAERS Safety Report 7966334 (Version 2)
Quarter: 2012Q4

REPORT INFORMATION
  Report Type: 
  Country: US (occurrence: US)
  Receive Date: 20110531
  Receipt Date: 20120913
  Transmission Date: 20130627
  Serious: Yes (Hospitalization)
  Sender: FDA-Public Use
  Company Number: US-JNJFOC-20110510010

PATIENT
  Sex: Female
  Weight: 53.52 kg

DRUGS (8)
  1. DURAGESIC [Suspect]
     Indication: FIBROMYALGIA
     Dosage: 100 ug/hr 2 patches
     Route: 062
     Dates: start: 2009
  2. DURAGESIC [Suspect]
     Indication: BACK PAIN
     Dosage: 100 ug/hr 2 patches
     Route: 062
     Dates: start: 2009
  3. DURAGESIC [Suspect]
     Indication: BACK PAIN
     Route: 062
  4. TOPAMAX [Concomitant]
     Indication: LOSS OF CONSCIOUSNESS
     Route: 048
  5. TOPAMAX [Concomitant]
     Indication: MIGRAINE
     Route: 048
  6. XANAX [Concomitant]
     Indication: PANIC DISORDER
     Route: 065
  7. NORCO [Concomitant]
     Indication: BREAKTHROUGH PAIN
     Route: 065
  8. SOMA [Concomitant]
     Indication: MUSCLE SPASMS
     Route: 065

REACTIONS (7)
  - Back pain [Unknown]
  - Wrong technique in drug usage process [Unknown]
  - Wrong technique in drug usage process [Unknown]
  - Product quality issue [Unknown]
  - Product quality issue [Unknown]
  - Product outer packaging issue [Unknown]
  - Product outer packaging issue [Unknown]
